FAERS Safety Report 5339663-5 (Version None)
Quarter: 2007Q2

REPORT INFORMATION
  Report Type: 
  Country: None (occurrence: None)
  Receive Date: 20070525
  Receipt Date: 20070515
  Transmission Date: 20071010
  Serious: Yes (Hospitalization)
  Sender: FDA-Public Use
  Company Number: 200609IM000547

PATIENT
  Age: 60 Year
  Sex: Female
  Weight: 62.1428 kg

DRUGS (13)
  1. INTERFERON GAMMA-1B [Suspect]
     Indication: PULMONARY FIBROSIS
     Dosage: SEE IMAGE
     Route: 058
     Dates: start: 20060303, end: 20060315
  2. INTERFERON GAMMA-1B [Suspect]
     Indication: PULMONARY FIBROSIS
     Dosage: SEE IMAGE
     Route: 058
     Dates: start: 20060317
  3. GABAPENTIN [Concomitant]
  4. INDOMETHACIN [Concomitant]
  5. ATORVASTATIN CALCIUM [Concomitant]
  6. LEVOTHYROXINE SODIUM [Concomitant]
  7. POTASSIUM CHLORIDE [Concomitant]
  8. LOSARTAN POTASSIUM [Concomitant]
  9. HYDROCHLOROTHIAZIDE [Concomitant]
  10. CARVEDILOL [Concomitant]
  11. PREDNISONE TAB [Concomitant]
  12. DARVOCET [Concomitant]
  13. ED-TUSS [Concomitant]

REACTIONS (2)
  - DYSPNOEA [None]
  - OXYGEN SATURATION DECREASED [None]
